FAERS Safety Report 9904855 (Version 1)
Quarter: 2013Q2

REPORT INFORMATION
  Report Type: Spontaneous
  Country: US (occurrence: None)
  Receive Date: 20130627
  Receipt Date: 20130627
  Transmission Date: 20140414
  Serious: No
  Sender: FDA-Public Use
  Company Number: 1000044254

PATIENT
  Age: 86 Year
  Sex: Female

DRUGS (12)
  1. LINZESS [Suspect]
     Indication: IRRITABLE BOWEL SYNDROME
     Dosage: 290 MCG (290 MCG, 1 IN 1 D), ORAL
     Route: 048
     Dates: start: 201304, end: 20130410
  2. MILK OF MAGNESIA [Concomitant]
  3. MIRALAX (POLYETHYLENE GLYCOL) (POLYETHYLENE GLYCOL) [Concomitant]
  4. SIMVASTATIN (SIMVASTATIN) (SIMVASTATIN) [Concomitant]
  5. METOPROLOL  (METOPROLOL) (METOPROLOL) [Concomitant]
  6. PLAVIX (CLOPIDOGREL BISULFATE) (CLOPIDOGREL BISULFATE)? [Concomitant]
  7. LIBRAX (CHLORDIAZEPOXIDE, CLIDINIUM) (CHLORDIAZEPOXIDE, CLIDINIUM)? [Concomitant]
  8. SYNTHROID (LEVOTHYROXINE SODIUM) (LEVOTHYROXINE SODIUM)? [Concomitant]
  9. VITAMIN D (VITAMIN D) (VITAMIN D)? [Concomitant]
  10. VITAMIN B 12 (VITAMIN B NOS) (VITAMIN B NOS) [Concomitant]
  11. ASPIRIN (ACETYLSALICYLIC ACID) (ACETYLSALICYLIC ACID) [Concomitant]
  12. TYLENOL (ACETAMINOPHEN) (ACETAMINOPHEN) [Concomitant]

REACTIONS (1)
  - Drug ineffective [None]
